FAERS Safety Report 6643458-X (Version None)
Quarter: 2010Q1

REPORT INFORMATION
  Report Type: 
  Country: None (occurrence: None)
  Receive Date: 20100319
  Receipt Date: 20100316
  Transmission Date: 20100710
  Serious: Yes (Hospitalization)
  Sender: FDA-Public Use
  Company Number: AU-MERCK-1003USA02267

PATIENT
  Age: 86 Year
  Sex: Female

DRUGS (7)
  1. FOSAMAX [Suspect]
     Route: 048
     Dates: start: 20091031
  2. AVAPRO [Concomitant]
     Route: 065
  3. COLESE [Concomitant]
     Route: 065
  4. ENDEP [Concomitant]
     Route: 065
  5. NEXIUM [Concomitant]
     Route: 065
  6. PANADOL OSTEO [Concomitant]
     Route: 065
  7. PANAFCORTELONE [Concomitant]
     Route: 065

REACTIONS (4)
  - BURN OESOPHAGEAL [None]
  - DIARRHOEA [None]
  - DYSPHAGIA [None]
  - VOMITING [None]
